FAERS Safety Report 8239737-5 (Version None)
Quarter: 2012Q1

REPORT INFORMATION
  Report Type: 
  Country: None (occurrence: None)
  Receive Date: 20120327
  Receipt Date: 20120327
  Transmission Date: 20120608
  Serious: Yes (Hospitalization)
  Sender: FDA-Public Use
  Company Number: None

PATIENT
  Sex: Female
  Weight: 106.1 kg

DRUGS (1)
  1. TAXOL [Suspect]
     Dosage: 160 MG

REACTIONS (1)
  - FEBRILE NEUTROPENIA [None]
